FAERS Safety Report 12360564 (Version 1)
Quarter: 2016Q2

REPORT INFORMATION
  Report Type: Spontaneous
  Country: US (occurrence: US)
  Receive Date: 20160512
  Receipt Date: 20160512
  Transmission Date: 20160815
  Serious: No
  Sender: FDA-Public Use
  Company Number: US-ACTAVIS-2016-05334

PATIENT
  Sex: Female
  Weight: 61 kg

DRUGS (1)
  1. MICONAZOLE NITRATE-MICONAZOLE (AMALLC) [Suspect]
     Active Substance: MICONAZOLE NITRATE
     Indication: PRODUCT USED FOR UNKNOWN INDICATION
     Dosage: UNK, ONCE A DAY (AT NIGHT TIME)
     Route: 065
     Dates: start: 20160229, end: 20160303

REACTIONS (1)
  - Drug ineffective [Unknown]

NARRATIVE: CASE EVENT DATE: 20160307
